FAERS Safety Report 6846897-7 (Version None)
Quarter: 2010Q3

REPORT INFORMATION
  Report Type: 
  Country: None (occurrence: None)
  Receive Date: 20100715
  Receipt Date: 20071116
  Transmission Date: 20110219
  Serious: No
  Sender: FDA-Public Use
  Company Number: US-PFIZER INC-2007079871

PATIENT
  Sex: Male
  Weight: 136.4 kg

DRUGS (2)
  1. CHANTIX [Suspect]
     Indication: SMOKING CESSATION THERAPY
     Route: 048
     Dates: start: 20070917, end: 20070917
  2. LEXAPRO [Concomitant]

REACTIONS (3)
  - ADVERSE EVENT [None]
  - FEELING ABNORMAL [None]
  - INSOMNIA [None]
